FAERS Safety Report 15456664 (Version 1)
Quarter: 2018Q4

REPORT INFORMATION
  Report Type: Spontaneous
  Country: GB (occurrence: GB)
  Receive Date: 20181002
  Receipt Date: 20181002
  Transmission Date: 20190204
  Serious: Yes (Disabling, Other)
  Sender: FDA-Public Use
  Company Number: GB-PFIZER INC-2018389858

PATIENT
  Age: 75 Year
  Sex: Female
  Weight: 66.67 kg

DRUGS (5)
  1. MULTIVITAMIN [VITAMINS NOS] [Concomitant]
     Dosage: UNK
  2. AMLODIPINE BESILATE [Suspect]
     Active Substance: AMLODIPINE BESYLATE
     Dosage: 20 MG, UNK
     Route: 048
     Dates: start: 20171101, end: 20180401
  3. CALCIUM VITAMIN D [Concomitant]
     Active Substance: CALCIUM\VITAMIN D
     Dosage: UNK
  4. COD-LIVER OIL [Concomitant]
     Active Substance: COD LIVER OIL
     Dosage: UNK
  5. LOPERAMIDE [Concomitant]
     Active Substance: LOPERAMIDE
     Dosage: 2 MG, UNK

REACTIONS (1)
  - Musculoskeletal disorder [Recovered/Resolved with Sequelae]

NARRATIVE: CASE EVENT DATE: 20180101
